FAERS Safety Report 23170332 (Version 2)
Quarter: 2023Q4

REPORT INFORMATION
  Report Type: Spontaneous
  Country: US (occurrence: US)
  Receive Date: 20231110
  Receipt Date: 20231117
  Transmission Date: 20240110
  Serious: No
  Sender: FDA-Public Use
  Company Number: US-TAKEDA-2023TUS109276

PATIENT
  Sex: Male
  Weight: 70.748 kg

DRUGS (2)
  1. FOSRENOL [Suspect]
     Active Substance: LANTHANUM CARBONATE
     Indication: End stage renal disease
     Dosage: 1000 MILLIGRAM
     Route: 065
  2. FOSRENOL [Suspect]
     Active Substance: LANTHANUM CARBONATE
     Dosage: UNK
     Route: 065

REACTIONS (2)
  - Blood phosphorus increased [Unknown]
  - Drug ineffective [Unknown]
